FAERS Safety Report 7279922-2 (Version None)
Quarter: 2011Q1

REPORT INFORMATION
  Report Type: 
  Country: None (occurrence: None)
  Receive Date: 20110208
  Receipt Date: 20101217
  Transmission Date: 20110831
  Serious: Yes (Other)
  Sender: FDA-Public Use
  Company Number: US-BAYER-201020941NA

PATIENT
  Sex: Female
  Weight: 65 kg

DRUGS (4)
  1. YAZ [Suspect]
     Indication: MENSTRUATION IRREGULAR
     Route: 048
  2. ALBUTEROL [Concomitant]
     Dosage: ONE PUFF, AS NEEDED
     Route: 048
  3. PREVACID [Concomitant]
     Indication: GASTROOESOPHAGEAL REFLUX DISEASE
  4. VITAMIN K TAB [Concomitant]
     Dosage: 2 MG, UNK

REACTIONS (2)
  - PAIN [None]
  - DEEP VEIN THROMBOSIS [None]
